FAERS Safety Report 23046396 (Version 2)
Quarter: 2023Q4

REPORT INFORMATION
  Report Type: Spontaneous
  Country: BE (occurrence: BE)
  Receive Date: 20231009
  Receipt Date: 20231019
  Transmission Date: 20240110
  Serious: Yes (Other)
  Sender: FDA-Public Use
  Company Number: BE-ABBVIE-5418190

PATIENT
  Sex: Female

DRUGS (2)
  1. XALKORI [Suspect]
     Active Substance: CRIZOTINIB
     Indication: Chemotherapy
     Dosage: UNK
     Route: 065
  2. GLECAPREVIR\PIBRENTASVIR [Suspect]
     Active Substance: GLECAPREVIR\PIBRENTASVIR
     Dosage: UNK
     Route: 048

REACTIONS (3)
  - Hepatitis fulminant [Recovered/Resolved]
  - Blood bilirubin increased [Unknown]
  - International normalised ratio abnormal [Unknown]
